FAERS Safety Report 17349808 (Version 3)
Quarter: 2020Q1

REPORT INFORMATION
  Report Type: Spontaneous
  Country: JP (occurrence: JP)
  Receive Date: 20200130
  Receipt Date: 20200224
  Transmission Date: 20200409
  Serious: Yes (Hospitalization, Other)
  Sender: FDA-Public Use
  Company Number: JP-APOTEX-2020AP006987

PATIENT
  Age: 63 Year
  Sex: Male

DRUGS (1)
  1. PAXIL CR [Suspect]
     Active Substance: PAROXETINE HYDROCHLORIDE
     Indication: DEPRESSED MOOD
     Dosage: 50 MG, QD
     Route: 048

REACTIONS (2)
  - Foreign body in respiratory tract [Recovered/Resolved]
  - Foreign body aspiration [Recovered/Resolved]
